FAERS Safety Report 5851498-3 (Version None)
Quarter: 2008Q3

REPORT INFORMATION
  Report Type: 
  Country: None (occurrence: None)
  Receive Date: 20080731
  Receipt Date: 20080417
  Transmission Date: 20090109
  Serious: No
  Sender: FDA-Public Use
  Company Number: US200804004663

PATIENT
  Age: 62 Year

DRUGS (2)
  1. BYETTA [Suspect]
     Dosage: SUBCUTANEOUS
     Route: 058
  2. DRUG USED IN DIABETES [Concomitant]

REACTIONS (1)
  - BLOOD GLUCOSE DECREASED [None]
